FAERS Safety Report 10102141 (Version 1)
Quarter: 2014Q2

REPORT INFORMATION
  Report Type: Spontaneous
  Country: IT (occurrence: IT)
  Receive Date: 20140424
  Receipt Date: 20140424
  Transmission Date: 20141212
  Serious: Yes (Hospitalization, Other)
  Sender: FDA-Public Use
  Company Number: IT-ASTRAZENECA-2014SE26706

PATIENT
  Age: 31358 Day
  Sex: Female

DRUGS (6)
  1. TENORMIN [Suspect]
     Indication: ISCHAEMIC HEART DISEASE PROPHYLAXIS
     Route: 048
     Dates: start: 20131001, end: 20140205
  2. LANOXIN [Interacting]
     Indication: MYOCARDIAL ISCHAEMIA
     Route: 048
     Dates: start: 20130101, end: 20140205
  3. COUMADIN [Concomitant]
  4. ALDACTONE [Concomitant]
  5. IRBESARTAN [Concomitant]
  6. LASIX [Concomitant]

REACTIONS (4)
  - Drug interaction [Recovered/Resolved]
  - Toxicity to various agents [Recovered/Resolved]
  - Sinus bradycardia [Recovered/Resolved]
  - Cardioactive drug level increased [Unknown]
